FAERS Safety Report 4395557-3 (Version None)
Quarter: 2004Q3

REPORT INFORMATION
  Report Type: 
  Country: None (occurrence: None)
  Receive Date: 20040709
  Receipt Date: 20040629
  Transmission Date: 20050211
  Serious: Yes (Hospitalization, Other)
  Sender: FDA-Public Use
  Company Number: USA-2003-0006446

PATIENT
  Age: 43 Year
  Sex: Female
  Weight: 59.9 kg

DRUGS (23)
  1. OXYCONTIN [Suspect]
     Indication: PAIN
     Dosage: SEE IMAGE
     Dates: start: 19981105, end: 20011214
  2. ROXICODONE [Concomitant]
  3. PHENERGAN [Concomitant]
  4. NICOTINE [Concomitant]
  5. ATIVAN [Concomitant]
  6. PRILOSEC [Concomitant]
  7. ESTRADERM [Concomitant]
  8. SANDOSTATIN [Concomitant]
  9. BENADRYL [Concomitant]
  10. CREON [Concomitant]
  11. BENTYL [Concomitant]
  12. PEPCID (FAMOTIDINE0 [Concomitant]
  13. MULTI-VITAMINS [Concomitant]
  14. ... [Concomitant]
  15. AMBIEN [Concomitant]
  16. COLACE CAPSULES 100 MG (DOCUSATE SODIUM)CAPSULE [Concomitant]
  17. VALIUM [Concomitant]
  18. PROPRANOLOL [Concomitant]
  19. NEURONTIN [Concomitant]
  20. FLEXERIL [Concomitant]
  21. DEMEROL [Concomitant]
  22. VIOKASE (PANCRELIPASE) [Concomitant]
  23. ANTIPYRINE W/BENZOCAINE (BENZOCAINE, PHENAZONE) [Concomitant]

REACTIONS (36)
  - ABDOMINAL DISTENSION [None]
  - ABDOMINAL PAIN [None]
  - ASTHENIA [None]
  - CATHETER SEPSIS [None]
  - CHEST PAIN [None]
  - CHILLS [None]
  - CONSTIPATION [None]
  - COUGH [None]
  - CULTURE URINE POSITIVE [None]
  - DEPRESSION [None]
  - DIARRHOEA [None]
  - DIZZINESS [None]
  - DRUG DEPENDENCE [None]
  - DRUG WITHDRAWAL SYNDROME [None]
  - DYSPNOEA [None]
  - GASTRITIS [None]
  - HEADACHE [None]
  - HYPERHIDROSIS [None]
  - INSOMNIA [None]
  - INTESTINAL OBSTRUCTION [None]
  - IRRITABILITY [None]
  - KLEBSIELLA INFECTION [None]
  - MUSCLE CRAMP [None]
  - NAUSEA [None]
  - NERVOUSNESS [None]
  - NIGHT SWEATS [None]
  - OEDEMA PERIPHERAL [None]
  - ORAL PAIN [None]
  - PAIN [None]
  - PANCREATITIS CHRONIC [None]
  - PROCTALGIA [None]
  - PYREXIA [None]
  - TACHYCARDIA [None]
  - TREMOR [None]
  - VOMITING [None]
  - WEIGHT DECREASED [None]
